FAERS Safety Report 7492614-X (Version None)
Quarter: 2011Q2

REPORT INFORMATION
  Report Type: 
  Country: None (occurrence: None)
  Receive Date: 20110519
  Receipt Date: 20110505
  Transmission Date: 20111010
  Serious: Yes (Other)
  Sender: FDA-Public Use
  Company Number: US-CELGENEUS-163-21880-11050892

PATIENT
  Sex: Male
  Weight: 74.91 kg

DRUGS (14)
  1. REVLIMID [Suspect]
     Dosage: 10 MILLIGRAM
     Route: 048
     Dates: start: 20090101
  2. SIMVASTATIN [Concomitant]
     Route: 065
  3. REVLIMID [Suspect]
     Indication: MULTIPLE MYELOMA
     Dosage: 25 MILLIGRAM
     Route: 048
     Dates: start: 20081101
  4. ASPIRIN [Concomitant]
     Dosage: 81 MILLIGRAM
     Route: 065
  5. METOPROLOL TARTRATE [Concomitant]
     Route: 065
  6. POTASSIUM [Concomitant]
     Route: 065
  7. GLYBURIDE [Concomitant]
     Route: 065
  8. REVLIMID [Suspect]
     Dosage: 25 MILLIGRAM
     Route: 048
     Dates: start: 20100813
  9. LISINOPRIL [Concomitant]
     Route: 065
  10. COTRIM [Concomitant]
     Route: 065
  11. ANTIBIOTICS [Concomitant]
     Route: 065
  12. REVLIMID [Suspect]
     Dosage: 5 MILLIGRAM
     Route: 048
     Dates: start: 20100901
  13. FUROSEMIDE [Concomitant]
     Route: 065
  14. VITAMIN D [Concomitant]
     Route: 065

REACTIONS (2)
  - WHITE BLOOD CELL COUNT DECREASED [None]
  - SKIN CANCER [None]
